FAERS Safety Report 22364651 (Version 1)
Quarter: 2023Q2

REPORT INFORMATION
  Report Type: Spontaneous
  Country: CN (occurrence: CN)
  Receive Date: 20230525
  Receipt Date: 20230525
  Transmission Date: 20230721
  Serious: Yes (Life-Threatening)
  Sender: FDA-Public Use
  Company Number: CN-AstraZeneca-2023A112204

PATIENT
  Age: 70 Year
  Sex: Female
  Weight: 59.7 kg

DRUGS (1)
  1. METOPROLOL SUCCINATE [Suspect]
     Active Substance: METOPROLOL SUCCINATE
     Indication: Palpitations
     Route: 048
     Dates: start: 20230416, end: 20230420

REACTIONS (2)
  - Sinus arrest [Recovering/Resolving]
  - Nodal rhythm [Unknown]

NARRATIVE: CASE EVENT DATE: 20230420
